FAERS Safety Report 8985128 (Version 1)
Quarter: 2012Q4

REPORT INFORMATION
  Report Type: 
  Country: AU (occurrence: AU)
  Receive Date: 20121226
  Receipt Date: 20121226
  Transmission Date: 20130627
  Serious: Yes (Other)
  Sender: FDA-Public Use
  Company Number: PHHY2012AU118661

PATIENT
  Sex: Female

DRUGS (1)
  1. ACLASTA [Suspect]
     Dosage: 5 mg, UNK
     Route: 042
     Dates: start: 20111216

REACTIONS (4)
  - Myositis [Recovered/Resolved]
  - Myalgia [Recovered/Resolved]
  - Adverse drug reaction [Recovered/Resolved]
  - Arthralgia [Recovered/Resolved]
